FAERS Safety Report 9527374 (Version 1)
Quarter: 2013Q3

REPORT INFORMATION
  Report Type: Spontaneous
  Country: US (occurrence: US)
  Receive Date: 20130917
  Receipt Date: 20130917
  Transmission Date: 20140515
  Serious: No
  Sender: FDA-Public Use
  Company Number: US-BIOGENIDEC-2013BI085775

PATIENT
  Age: 56 Year
  Sex: Female

DRUGS (1)
  1. TYSABRI [Suspect]
     Indication: MULTIPLE SCLEROSIS
     Route: 042
     Dates: start: 20120124

REACTIONS (4)
  - Optic neuritis [Recovered/Resolved]
  - Eye haemorrhage [Recovered/Resolved]
  - Visual field defect [Recovered/Resolved]
  - Headache [Recovered/Resolved]
